FAERS Safety Report 4539952-8 (Version None)
Quarter: 2004Q4

REPORT INFORMATION
  Report Type: 
  Country: None (occurrence: None)
  Receive Date: 20041223
  Receipt Date: 20041213
  Transmission Date: 20050328
  Serious: Yes (Other)
  Sender: FDA-Public Use
  Company Number: 2004114402

PATIENT
  Age: 50 Year
  Sex: Female

DRUGS (1)
  1. FELDENE [Suspect]
     Indication: BACK PAIN
     Dosage: 20 MG (1 D), INTRAMUSCULAR
     Route: 030

REACTIONS (1)
  - ANAPHYLACTIC SHOCK [None]
